FAERS Safety Report 21559411 (Version 1)
Quarter: 2022Q4

REPORT INFORMATION
  Report Type: Spontaneous
  Country: US (occurrence: US)
  Receive Date: 20221107
  Receipt Date: 20221107
  Transmission Date: 20230113
  Serious: Yes (Death, Other)
  Sender: FDA-Public Use
  Company Number: US-BRISTOL-MYERS SQUIBB COMPANY-2022-132856

PATIENT
  Age: 81 Year
  Sex: Male
  Weight: 71.21 kg

DRUGS (1)
  1. REVLIMID [Suspect]
     Active Substance: LENALIDOMIDE
     Indication: Plasma cell myeloma
     Dosage: 21D OF 28D CYCLE
     Route: 048
     Dates: end: 20221030

REACTIONS (1)
  - Death [Fatal]

NARRATIVE: CASE EVENT DATE: 20221030
